FAERS Safety Report 8649519 (Version 3)
Quarter: 2012Q4

REPORT INFORMATION
  Report Type: 
  Country: US (occurrence: US)
  Receive Date: 20120705
  Receipt Date: 20121130
  Transmission Date: 20130627
  Serious: Yes (Death, Hospitalization)
  Sender: FDA-Public Use
  Company Number: US-US-EMD SERONO, INC.-7144247

PATIENT
  Sex: Male
  Weight: 73 kg

DRUGS (2)
  1. REBIF [Suspect]
     Indication: MULTIPLE SCLEROSIS
     Route: 058
     Dates: start: 20120608, end: 20120622
  2. GABAPENTIN [Concomitant]
     Indication: PARAESTHESIA
     Dates: start: 20120516, end: 20120612

REACTIONS (1)
  - Glioblastoma multiforme [Fatal]
